FAERS Safety Report 9771846 (Version 1)
Quarter: 2013Q4

REPORT INFORMATION
  Report Type: Spontaneous
  Country: JP (occurrence: JP)
  Receive Date: 20131219
  Receipt Date: 20131219
  Transmission Date: 20140711
  Serious: Yes (Other)
  Sender: FDA-Public Use
  Company Number: JP-JNJFOC-20131207879

PATIENT
  Sex: 0

DRUGS (1)
  1. RISPERDAL [Suspect]
     Indication: RESTLESSNESS
     Route: 048

REACTIONS (3)
  - Renal impairment [Unknown]
  - Off label use [Unknown]
  - Inappropriate schedule of drug administration [Unknown]
